FAERS Safety Report 22173432 (Version 4)
Quarter: 2024Q2

REPORT INFORMATION
  Report Type: Spontaneous
  Country: BA (occurrence: BA)
  Receive Date: 20230404
  Receipt Date: 20240611
  Transmission Date: 20240716
  Serious: Yes (Death, Life-Threatening, Other)
  Sender: FDA-Public Use
  Company Number: BA-ALXN-A202304099

PATIENT
  Sex: Female
  Weight: 17 kg

DRUGS (1)
  1. ULTOMIRIS [Suspect]
     Active Substance: RAVULIZUMAB-CWVZ
     Indication: Atypical haemolytic uraemic syndrome
     Dosage: 600 MG, SINGLE
     Route: 042
     Dates: start: 20230316, end: 20230316

REACTIONS (2)
  - Atypical haemolytic uraemic syndrome [Fatal]
  - Condition aggravated [Fatal]
